FAERS Safety Report 21437447 (Version 1)
Quarter: 2022Q4

REPORT INFORMATION
  Report Type: Spontaneous
  Country: US (occurrence: US)
  Receive Date: 20221011
  Receipt Date: 20221011
  Transmission Date: 20230113
  Serious: No
  Sender: FDA-Public Use
  Company Number: US-ABBVIE-4146341

PATIENT
  Sex: Female

DRUGS (1)
  1. SKYRIZI [Suspect]
     Active Substance: RISANKIZUMAB-RZAA
     Indication: Psoriasis
     Route: 058
     Dates: start: 202009

REACTIONS (4)
  - Crohn^s disease [Unknown]
  - Nausea [Unknown]
  - Back pain [Unknown]
  - Terminal ileitis [Unknown]

NARRATIVE: CASE EVENT DATE: 20210101
